FAERS Safety Report 16814944 (Version 1)
Quarter: 2019Q4

REPORT INFORMATION
  Report Type: Spontaneous
  Country: US (occurrence: US)
  Receive Date: 20190916
  Receipt Date: 20190916
  Transmission Date: 20200122
  Serious: No
  Sender: FDA-Public Use
  Company Number: None

PATIENT
  Age: 54 Year
  Sex: Female

DRUGS (1)
  1. DUPIXENT [Suspect]
     Active Substance: DUPILUMAB
     Dosage: ?          OTHER FREQUENCY:Q2W;?
     Route: 058

REACTIONS (3)
  - Condition aggravated [None]
  - Dermatitis atopic [None]
  - Treatment failure [None]

NARRATIVE: CASE EVENT DATE: 20190916
